FAERS Safety Report 7903470-7 (Version None)
Quarter: 2011Q4

REPORT INFORMATION
  Report Type: 
  Country: None (occurrence: None)
  Receive Date: 20111109
  Receipt Date: 20111107
  Transmission Date: 20120403
  Serious: Yes (Hospitalization)
  Sender: FDA-Public Use
  Company Number: DE-SANOFI-AVENTIS-2011SA003219

PATIENT
  Age: 73 Year
  Sex: Female
  Weight: 65 kg

DRUGS (4)
  1. MIRTAZAPINE [Concomitant]
     Dates: start: 20101229
  2. ZYPREXA [Concomitant]
     Dates: start: 20101229
  3. DOCETAXEL [Suspect]
     Route: 041
     Dates: start: 20110107, end: 20110107
  4. DOCETAXEL [Suspect]
     Indication: BREAST CANCER
     Route: 041

REACTIONS (2)
  - DEPRESSION [None]
  - LEUKOPENIA [None]
